FAERS Safety Report 4280217-X (Version None)
Quarter: 2004Q1

REPORT INFORMATION
  Report Type: 
  Country: None (occurrence: None)
  Receive Date: 20040126
  Receipt Date: 20040114
  Transmission Date: 20041129
  Serious: Yes (Hospitalization)
  Sender: FDA-Public Use
  Company Number: 2003UW17186

PATIENT
  Age: 73 Year
  Sex: Male
  Weight: 89.2 kg

DRUGS (8)
  1. CRESTOR [Suspect]
     Dosage: 40 MG QD PO
     Route: 048
  2. METOPROLOL [Concomitant]
  3. ARTHRITIS BAYER TIMED RELEASE ASPIRIN [Concomitant]
  4. LISINOPRIL [Concomitant]
  5. OXAZEPAM [Concomitant]
  6. HYDROCHLOROTHIAZIDE [Concomitant]
  7. NIFEDIPINE [Concomitant]
  8. OMEPRAZOLE [Concomitant]

REACTIONS (2)
  - FALL [None]
  - TENDON RUPTURE [None]
